FAERS Safety Report 25035294 (Version 2)
Quarter: 2025Q2

REPORT INFORMATION
  Report Type: Spontaneous
  Country: US (occurrence: US)
  Receive Date: 20250304
  Receipt Date: 20250607
  Transmission Date: 20250717
  Serious: No
  Sender: STEMLINE THERAPEUTICS
  Company Number: US-STEMLINE THERAPEUTICS B.V.-2025-STML-US000285

PATIENT

DRUGS (2)
  1. ORSERDU [Suspect]
     Active Substance: ELACESTRANT
     Indication: Breast cancer metastatic
     Dosage: UNK, DAILY
     Route: 048
     Dates: start: 20240106, end: 20240111
  2. ORSERDU [Suspect]
     Active Substance: ELACESTRANT
     Dosage: UNK, DAILY
     Route: 048
     Dates: start: 20240805

REACTIONS (3)
  - Hair growth abnormal [Recovered/Resolved]
  - Fatigue [Recovered/Resolved]
  - Diarrhoea [Recovered/Resolved]
